FAERS Safety Report 18251923 (Version 2)
Quarter: 2020Q3

REPORT INFORMATION
  Report Type: Spontaneous
  Country: JP (occurrence: JP)
  Receive Date: 20200910
  Receipt Date: 20200927
  Transmission Date: 20201103
  Serious: Yes (Other)
  Sender: FDA-Public Use
  Company Number: JP-ROCHE-2675182

PATIENT
  Sex: Female

DRUGS (2)
  1. HERCEPTIN [Suspect]
     Active Substance: TRASTUZUMAB
     Indication: BREAST CANCER
     Dosage: MOST RECENT DOSE PRIOR TO AE //2020
     Route: 041
     Dates: start: 2020
  2. PERJETA [Suspect]
     Active Substance: PERTUZUMAB
     Indication: BREAST CANCER
     Dosage: MOST RECENT DOSE PRIOR TO AE //2020
     Route: 042
     Dates: start: 2020

REACTIONS (1)
  - Uveitis [Recovering/Resolving]

NARRATIVE: CASE EVENT DATE: 2020
